FAERS Safety Report 26086099 (Version 1)
Quarter: 2025Q4

REPORT INFORMATION
  Report Type: Spontaneous
  Country: EU (occurrence: EU)
  Receive Date: 20251125
  Receipt Date: 20251125
  Transmission Date: 20260117
  Serious: Yes (Other)
  Sender: ASTELLAS
  Company Number: EU-ASTELLAS-2025-AER-063748

PATIENT
  Age: 82 Year
  Sex: Male

DRUGS (3)
  1. XOSPATA [Suspect]
     Active Substance: GILTERITINIB
     Indication: Acute myeloid leukaemia
     Route: 065
     Dates: start: 20240423
  2. XOSPATA [Suspect]
     Active Substance: GILTERITINIB
     Indication: FLT3 gene mutation
     Dosage: DOSAGE REDUCED
     Route: 065
     Dates: start: 202407
  3. XOSPATA [Suspect]
     Active Substance: GILTERITINIB
     Dosage: DOSAGE INCREASED
     Route: 065
     Dates: start: 202504

REACTIONS (5)
  - Blast cell count increased [Unknown]
  - Blast cell count increased [Unknown]
  - Differentiation syndrome [Unknown]
  - Rash pruritic [Unknown]
  - Rash maculo-papular [Unknown]

NARRATIVE: CASE EVENT DATE: 20240601
